FAERS Safety Report 16358001 (Version 2)
Quarter: 2019Q2

REPORT INFORMATION
  Report Type: Spontaneous
  Country: JP (occurrence: JP)
  Receive Date: 20190527
  Receipt Date: 20190602
  Transmission Date: 20190711
  Serious: Yes (Life-Threatening, Other)
  Sender: FDA-Public Use
  Company Number: PHJP2018JP001370

PATIENT
  Age: 75 Year
  Sex: Male
  Weight: 66 kg

DRUGS (10)
  1. GRACEPTOR [Suspect]
     Active Substance: TACROLIMUS
     Indication: LICHENOID KERATOSIS
     Dosage: 0.5 MG
     Route: 048
     Dates: start: 20150324, end: 20150612
  2. PREDNISOLONE. [Suspect]
     Active Substance: PREDNISOLONE
     Dosage: 12.5 MG, UNK
     Route: 048
  3. PREDNISOLONE. [Suspect]
     Active Substance: PREDNISOLONE
     Dosage: 17.5 MG, UNK
     Route: 048
     Dates: start: 201501
  4. PREDNISOLONE. [Suspect]
     Active Substance: PREDNISOLONE
     Dosage: 9 MG, UNK
     Route: 048
  5. NEORAL [Suspect]
     Active Substance: CYCLOSPORINE
     Indication: DRUG HYPERSENSITIVITY
     Dosage: 200 MG, QD
     Route: 048
     Dates: start: 20150119, end: 20150524
  6. CELLCEPT [Suspect]
     Active Substance: MYCOPHENOLATE MOFETIL\MYCOPHENOLATE MOFETIL HYDROCHLORIDE
     Indication: LICHENOID KERATOSIS
     Dosage: 1000 MG, QD
     Route: 048
     Dates: start: 20151002, end: 20161209
  7. NEORAL [Suspect]
     Active Substance: CYCLOSPORINE
     Indication: GRAFT VERSUS HOST DISEASE
  8. NEORAL [Suspect]
     Active Substance: CYCLOSPORINE
     Indication: LICHENOID KERATOSIS
     Dosage: 50 MG, QD
     Route: 048
     Dates: start: 20150525, end: 20150528
  9. PREDNISOLONE. [Suspect]
     Active Substance: PREDNISOLONE
     Indication: LICHENOID KERATOSIS
     Dosage: 40 MG, UNK
     Route: 048
  10. PREDNISOLONE. [Suspect]
     Active Substance: PREDNISOLONE
     Indication: DRUG HYPERSENSITIVITY
     Dosage: 60 MG, QD
     Route: 048
     Dates: start: 20140916

REACTIONS (8)
  - Renal impairment [Unknown]
  - Product use in unapproved indication [Unknown]
  - Epstein-Barr virus associated lymphoma [Not Recovered/Not Resolved]
  - Dizziness [Unknown]
  - Disorientation [Unknown]
  - Rash [Recovering/Resolving]
  - Epstein-Barr virus infection [Unknown]
  - Visual impairment [Unknown]

NARRATIVE: CASE EVENT DATE: 201606
